FAERS Safety Report 11893042 (Version 3)
Quarter: 2016Q1

REPORT INFORMATION
  Report Type: Report from Study
  Country: US (occurrence: US)
  Receive Date: 20160106
  Receipt Date: 20160202
  Transmission Date: 20160526
  Serious: Yes (Other)
  Sender: FDA-Public Use
  Company Number: US-BAYER-2015-452560

PATIENT
  Age: 72 Year
  Sex: Female

DRUGS (3)
  1. NEXAVAR [Suspect]
     Active Substance: SORAFENIB
     Indication: HEPATOCELLULAR CARCINOMA
     Dosage: 200 MG, BID
     Route: 048
     Dates: start: 20150918, end: 20151014
  2. NEXAVAR [Suspect]
     Active Substance: SORAFENIB
     Indication: HEPATOBLASTOMA
     Dosage: 200 MG, BID
     Route: 048
     Dates: start: 20151021, end: 2015
  3. NEXAVAR [Suspect]
     Active Substance: SORAFENIB
     Indication: HEPATOCELLULAR CARCINOMA
     Dosage: 400 MG, BID
     Route: 048
     Dates: start: 2015, end: 201601

REACTIONS (11)
  - Hypoaesthesia oral [None]
  - Aphasia [Not Recovered/Not Resolved]
  - Skin ulcer [Recovered/Resolved]
  - Anaemia [Unknown]
  - Mouth ulceration [Recovered/Resolved]
  - Haemorrhage [Not Recovered/Not Resolved]
  - Asthenia [None]
  - Mobility decreased [Not Recovered/Not Resolved]
  - Hypoaesthesia [Not Recovered/Not Resolved]
  - Amnesia [None]
  - Diarrhoea [Not Recovered/Not Resolved]

NARRATIVE: CASE EVENT DATE: 2015
